FAERS Safety Report 7025308-5 (Version None)
Quarter: 2010Q4

REPORT INFORMATION
  Report Type: 
  Country: None (occurrence: None)
  Receive Date: 20101001
  Receipt Date: 20100923
  Transmission Date: 20110411
  Serious: Yes (Hospitalization)
  Sender: FDA-Public Use
  Company Number: US-B.I. PHARMACEUTICALS,INC./RIDGEFIELD-2009-BP-07567BP

PATIENT
  Sex: Female
  Weight: 54 kg

DRUGS (6)
  1. MELOXICAM [Suspect]
     Indication: OSTEOARTHRITIS
     Route: 048
     Dates: start: 20081120, end: 20090205
  2. MELOXICAM [Suspect]
     Route: 048
     Dates: start: 20090206, end: 20090406
  3. MELOXICAM [Suspect]
     Route: 048
     Dates: start: 20090407, end: 20090602
  4. ARTHROTEC [Suspect]
     Indication: OSTEOARTHRITIS
     Route: 048
     Dates: start: 20081010, end: 20081119
  5. SOMA [Concomitant]
     Dates: start: 20081016
  6. VICODIN ES [Concomitant]
     Dates: start: 20090312

REACTIONS (1)
  - DUODENAL ULCER [None]
